FAERS Safety Report 9213832 (Version 1)
Quarter: 2013Q1

REPORT INFORMATION
  Report Type: Spontaneous
  Country: US (occurrence: None)
  Receive Date: 20120827
  Receipt Date: 20120827
  Transmission Date: 20140127
  Serious: No
  Sender: FDA-Public Use
  Company Number: 352338

PATIENT
  Age: 53 Year
  Sex: Male

DRUGS (3)
  1. VICTOZA (LIRAGLUTIDE) SOLUTION FOR INJECTION, 6MG/ML [Suspect]
     Indication: TYPE 2 DIABETES MELLITUS
     Route: 058
  2. ONGLYZA (SAXAGLIPTIN HYDROCHLORIDE) [Concomitant]
  3. ONGLYZA (SAXAGLIPTIN HYDROCHLORIDE) [Concomitant]

REACTIONS (5)
  - Dysgeusia [None]
  - Eructation [None]
  - Abdominal discomfort [None]
  - Glycosylated haemoglobin increased [None]
  - Dyspepsia [None]
